FAERS Safety Report 17902703 (Version 1)
Quarter: 2020Q2

REPORT INFORMATION
  Report Type: Spontaneous
  Country: US (occurrence: US)
  Receive Date: 20200616
  Receipt Date: 20200616
  Transmission Date: 20200714
  Serious: Yes (Other)
  Sender: FDA-Public Use
  Company Number: US-PURDUE PHARMA-USA-2020-0152823

PATIENT
  Age: 31 Year
  Sex: Female

DRUGS (2)
  1. OXYCODONE HCL CR TABLETS (SIMILAR TO NDA 22-272) [Suspect]
     Active Substance: OXYCODONE HYDROCHLORIDE
     Indication: PAIN
     Dosage: UNK
     Route: 048
     Dates: start: 200201, end: 200204
  2. TRAMADOL. [Suspect]
     Active Substance: TRAMADOL
     Indication: PAIN
     Dosage: UNK
     Route: 048
     Dates: start: 200201, end: 200202

REACTIONS (10)
  - Malaise [Unknown]
  - Cardiomyopathy [Unknown]
  - Drug interaction [Unknown]
  - Abdominal distension [Unknown]
  - Spinal pain [Unknown]
  - Loss of consciousness [Unknown]
  - Gastrointestinal haemorrhage [Unknown]
  - Fall [Unknown]
  - Liver injury [Unknown]
  - Nightmare [Unknown]

NARRATIVE: CASE EVENT DATE: 200202
